FAERS Safety Report 7666632-2 (Version None)
Quarter: 2011Q3

REPORT INFORMATION
  Report Type: 
  Country: None (occurrence: None)
  Receive Date: 20110806
  Receipt Date: 20110331
  Transmission Date: 20111222
  Serious: No
  Sender: FDA-Public Use
  Company Number: US-ABBOTT-11P-163-0715557-00

PATIENT
  Sex: Male
  Weight: 104.42 kg

DRUGS (8)
  1. ASPIRIN [Concomitant]
     Indication: PRODUCT USED FOR UNKNOWN INDICATION
  2. NIASPAN [Suspect]
     Dosage: IN THE MORNING
  3. CRESTOR [Concomitant]
     Indication: PRODUCT USED FOR UNKNOWN INDICATION
     Dosage: DAILY
  4. METOPROLOL TARTRATE [Concomitant]
     Indication: PRODUCT USED FOR UNKNOWN INDICATION
     Dosage: DAILY
  5. NIASPAN [Suspect]
     Indication: INVESTIGATION ABNORMAL
     Dosage: IT INCREASED GRADUALLY
  6. NIASPAN [Suspect]
     Dosage: AT BEDTIME
  7. LEVOXYL [Concomitant]
     Indication: PRODUCT USED FOR UNKNOWN INDICATION
     Dosage: DAILY
  8. FISH OIL [Concomitant]
     Indication: PRODUCT USED FOR UNKNOWN INDICATION
     Dosage: DAILY

REACTIONS (3)
  - INSOMNIA [None]
  - FEELING HOT [None]
  - FLUSHING [None]
